FAERS Safety Report 13216348 (Version 5)
Quarter: 2017Q2

REPORT INFORMATION
  Report Type: Report from Study
  Country: US (occurrence: US)
  Receive Date: 20170210
  Receipt Date: 20170619
  Transmission Date: 20170830
  Serious: Yes (Other)
  Sender: FDA-Public Use
  Company Number: PHEH2017US004196

PATIENT
  Sex: Female
  Weight: 64 kg

DRUGS (7)
  1. GILENYA [Suspect]
     Active Substance: FINGOLIMOD HYDROCHLORIDE
     Indication: RELAPSING-REMITTING MULTIPLE SCLEROSIS
     Dosage: 0.5 MG, QD
     Route: 048
     Dates: start: 2011, end: 20170202
  2. MULTI VITAMIN [Concomitant]
     Active Substance: VITAMINS
     Indication: PRODUCT USED FOR UNKNOWN INDICATION
     Dosage: 2 DF (GUMMIES), QD
     Route: 048
     Dates: start: 2015, end: 20170203
  3. PRENATAL [Concomitant]
     Active Substance: VITAMINS
     Indication: PRODUCT USED FOR UNKNOWN INDICATION
     Dosage: 2 DF (GUMMIES), QD (DURING FIRST TRIMESTER)
     Route: 048
     Dates: start: 20170204
  4. BENADRYL [Concomitant]
     Active Substance: DIPHENHYDRAMINE HYDROCHLORIDE
     Indication: HYPERSENSITIVITY
     Dosage: 25 MG, Q6H
     Route: 048
     Dates: start: 20170601
  5. SOLU-MEDROL [Concomitant]
     Active Substance: METHYLPREDNISOLONE SODIUM SUCCINATE
     Indication: MULTIPLE SCLEROSIS RELAPSE
     Dosage: UNK
     Route: 065
     Dates: start: 20170403, end: 20170405
  6. PRENATAL [Concomitant]
     Active Substance: VITAMINS
     Dosage: 1 DF, QD
     Route: 065
     Dates: start: 20170511
  7. GIANVI [Concomitant]
     Active Substance: DROSPIRENONE\ETHINYL ESTRADIOL
     Indication: CONTRACEPTION
     Dosage: 3 OR 0.02 MG, QD
     Route: 048
     Dates: start: 2007, end: 20161231

REACTIONS (3)
  - Beta haemolytic streptococcal infection [Unknown]
  - Multiple sclerosis relapse [Unknown]
  - Maternal exposure during pregnancy [Unknown]

NARRATIVE: CASE EVENT DATE: 2013
